FAERS Safety Report 20861206 (Version 1)
Quarter: 2022Q2

REPORT INFORMATION
  Report Type: Spontaneous
  Country: RU (occurrence: RU)
  Receive Date: 20220523
  Receipt Date: 20220523
  Transmission Date: 20220721
  Serious: Yes (Other)
  Sender: FDA-Public Use
  Company Number: RU-BEH-2022145465

PATIENT
  Age: 4 Month
  Sex: Male
  Weight: 3 kg

DRUGS (1)
  1. PRIVIGEN [Suspect]
     Active Substance: HUMAN IMMUNOGLOBULIN G
     Indication: Immunodeficiency
     Dosage: 30 MILLILITER
     Route: 042
     Dates: start: 20200625, end: 20200626

REACTIONS (4)
  - Hyperthermia [Not Recovered/Not Resolved]
  - Anuria [Recovered/Resolved]
  - Azotaemia [Recovered/Resolved]
  - Blood urea increased [Recovered/Resolved]

NARRATIVE: CASE EVENT DATE: 20200625
